FAERS Safety Report 7294043-0 (Version None)
Quarter: 2011Q1

REPORT INFORMATION
  Report Type: 
  Country: None (occurrence: None)
  Receive Date: 20110203
  Receipt Date: 20110125
  Transmission Date: 20110831
  Serious: No
  Sender: FDA-Public Use
  Company Number: 2010AM003330

PATIENT
  Age: 52 Year
  Sex: Female
  Weight: 101.1521 kg

DRUGS (14)
  1. COREG [Concomitant]
  2. PREV MEDS [Concomitant]
  3. SIMVASTATIN [Concomitant]
  4. CELEXA [Concomitant]
  5. POTASSIUM [Concomitant]
  6. LANTUS [Concomitant]
  7. LASIX [Concomitant]
  8. SYMLIN [Suspect]
     Indication: TYPE 2 DIABETES MELLITUS
     Dosage: 60 MCG;TID;SC ; 45 MCG;TID;SC ; 30 MCG;TID;SC ; 15 MCG;TID;SC
     Route: 058
  9. SYMLIN [Suspect]
     Indication: TYPE 2 DIABETES MELLITUS
     Dosage: 60 MCG;TID;SC ; 45 MCG;TID;SC ; 30 MCG;TID;SC ; 15 MCG;TID;SC
     Route: 058
     Dates: start: 20090223
  10. SYMLIN [Suspect]
     Indication: TYPE 2 DIABETES MELLITUS
     Dosage: 60 MCG;TID;SC ; 45 MCG;TID;SC ; 30 MCG;TID;SC ; 15 MCG;TID;SC
     Route: 058
  11. ALDACTONE [Concomitant]
  12. LISINOPRIL [Concomitant]
  13. GABAPENTIN [Concomitant]
  14. SYMLIN [Suspect]
     Indication: TYPE 2 DIABETES MELLITUS
     Dosage: 60 MCG;TID;SC ; 120 MCG;TID;SC
     Route: 058
     Dates: end: 20101213

REACTIONS (1)
  - NO ADVERSE EVENT [None]
